FAERS Safety Report 4874836-7 (Version None)
Quarter: 2006Q1

REPORT INFORMATION
  Report Type: 
  Country: None (occurrence: None)
  Receive Date: 20060104
  Receipt Date: 20051219
  Transmission Date: 20060701
  Serious: Yes (Other)
  Sender: FDA-Public Use
  Company Number: 2005171003

PATIENT
  Sex: Male

DRUGS (1)
  1. SILDENAFIL CITRATE [Suspect]
     Indication: ERECTILE DYSFUNCTION
     Dosage: ORAL
     Route: 048

REACTIONS (2)
  - BLINDNESS UNILATERAL [None]
  - VISION BLURRED [None]
